FAERS Safety Report 20133546 (Version 2)
Quarter: 2022Q1

REPORT INFORMATION
  Report Type: Spontaneous
  Country: CN (occurrence: None)
  Receive Date: 20211201
  Receipt Date: 20220121
  Transmission Date: 20220423
  Serious: Yes (Other)
  Sender: FDA-Public Use
  Company Number: CN-ROCHE-2967903

PATIENT
  Age: 52 Year
  Sex: Male

DRUGS (7)
  1. TECENTRIQ [Suspect]
     Active Substance: ATEZOLIZUMAB
     Indication: Hepatic cancer
     Dosage: ON 07 JAN 2021, 28 JAN 2021, 20 FEB 2021, 22 MAR 2021, 14 APR 2021, 11 MAY 2021,?08 JUN 2021, 6 JUL
     Route: 041
  2. AVASTIN [Suspect]
     Active Substance: BEVACIZUMAB
     Indication: Hepatic cancer
     Dosage: ON 07 JAN 2021, 28 JAN 2021, 20 FEB 2021, 22 MAR 2021, 14 APR 2021, 11 MAY 2021,?08 JUN 2021, 6 JUL
     Route: 042
  3. EPIRUBICIN [Concomitant]
     Active Substance: EPIRUBICIN
     Indication: Hepatic cancer
     Dosage: ON 30/DEC/2020 AND 01/FEB/2021.
  4. OXALIPLATIN [Concomitant]
     Active Substance: OXALIPLATIN
     Indication: Hepatic cancer
     Dosage: ON 30/DEC/2020 AND 01/FEB/2021
  5. OXALIPLATIN [Concomitant]
     Active Substance: OXALIPLATIN
     Dosage: (140MG)
     Dates: start: 20210305
  6. IODIZED OIL [Concomitant]
     Active Substance: IODIZED OIL
     Indication: Hepatic cancer
     Dosage: ON 30/DEC/2020 AND 01/FEB/2021
  7. RALTITREXED [Concomitant]
     Active Substance: RALTITREXED
     Indication: Hepatic cancer
     Dosage: (4.5MG)
     Dates: start: 20210305

REACTIONS (1)
  - Myelosuppression [Recovered/Resolved]

NARRATIVE: CASE EVENT DATE: 20210308
